FAERS Safety Report 22519124 (Version 1)
Quarter: 2023Q2

REPORT INFORMATION
  Report Type: Spontaneous
  Country: US (occurrence: US)
  Receive Date: 20230605
  Receipt Date: 20230605
  Transmission Date: 20230722
  Serious: No
  Sender: FDA-Public Use
  Company Number: US-PHARMING-PHAUS2023000404

PATIENT

DRUGS (1)
  1. RUCONEST [Suspect]
     Active Substance: HUMAN C1-ESTERASE INHIBITOR
     Indication: Delayed graft function
     Dosage: UNK

REACTIONS (2)
  - Product use in unapproved indication [Unknown]
  - Product use issue [Unknown]
